FAERS Safety Report 9472570 (Version 4)
Quarter: 2014Q1

REPORT INFORMATION
  Report Type: Report from Study
  Country: FR (occurrence: FR)
  Receive Date: 20130823
  Receipt Date: 20140106
  Transmission Date: 20141002
  Serious: Yes (Hospitalization, Other)
  Sender: FDA-Public Use
  Company Number: PHHY2013FR075598

PATIENT
  Age: 65 Year
  Sex: Female
  Weight: 55 kg

DRUGS (8)
  1. SANDOSTATIN LAR [Suspect]
     Indication: ENDOCRINE NEOPLASM
     Dosage: 30 MG, EVERY 4 WEEKS
     Route: 030
     Dates: start: 19981001
  2. AFINITOR [Concomitant]
     Indication: PANCREATIC NEUROENDOCRINE TUMOUR
     Dosage: 5 MG, UNK
     Route: 048
     Dates: start: 20120322
  3. AFINITOR [Concomitant]
     Dosage: 10 MG, QD
     Route: 048
     Dates: start: 2012
  4. DUROGESIC [Concomitant]
     Indication: PAIN
     Dosage: 50 MG, UNK
     Dates: start: 2013
  5. MOPRAL [Concomitant]
     Indication: PAIN
     Dosage: 20 UNK, 1 TABLET QD
     Route: 048
     Dates: start: 2010
  6. EVEROLIMUS [Concomitant]
     Dosage: UNK UKN, UNK
     Dates: start: 20120322
  7. SUNITINIB [Concomitant]
     Dosage: UNK UKN, UNK
     Dates: start: 20081207, end: 20100303
  8. SOMATOSTATIN [Concomitant]
     Dosage: UNK UKN, UNK
     Dates: start: 19981001

REACTIONS (4)
  - Femoral neck fracture [Recovered/Resolved]
  - Fall [Recovered/Resolved]
  - Wound infection [Unknown]
  - Post procedural infection [Recovered/Resolved]
